FAERS Safety Report 5669261-5 (Version None)
Quarter: 2008Q1

REPORT INFORMATION
  Report Type: 
  Country: None (occurrence: None)
  Receive Date: 20080317
  Receipt Date: 20080313
  Transmission Date: 20080703
  Serious: Yes (Death)
  Sender: FDA-Public Use
  Company Number: DE-ELI_LILLY_AND_COMPANY-DE200803002864

PATIENT
  Sex: Female

DRUGS (1)
  1. GEMCITABINE HCL [Suspect]
     Indication: NON-SMALL CELL LUNG CANCER
     Dosage: 1700 MG, UNKNOWN
     Route: 065
     Dates: start: 20070917

REACTIONS (1)
  - DEATH [None]
